FAERS Safety Report 6162254-3 (Version None)
Quarter: 2009Q2

REPORT INFORMATION
  Report Type: 
  Country: None (occurrence: None)
  Receive Date: 20090417
  Receipt Date: 20090417
  Transmission Date: 20091009
  Serious: Yes (Death, Life-Threatening, Hospitalization)
  Sender: FDA-Public Use
  Company Number: None

PATIENT
  Age: 78 Year
  Sex: Male

DRUGS (2)
  1. TORADOL [Suspect]
     Indication: PAIN
     Dosage: 30MG, 15MG ONCE, Q6H X 3 IV
     Route: 042
     Dates: start: 20081124, end: 20081125
  2. CELECOXIB [Suspect]
     Indication: PAIN
     Dosage: 200MG BID PO
     Route: 048
     Dates: start: 20081125, end: 20081128

REACTIONS (8)
  - ANAEMIA [None]
  - BLOOD CREATININE INCREASED [None]
  - BLOOD UREA INCREASED [None]
  - COLITIS ISCHAEMIC [None]
  - DIALYSIS [None]
  - OLIGURIA [None]
  - RENAL TUBULAR NECROSIS [None]
  - SEPSIS [None]
